FAERS Safety Report 6081249-1 (Version None)
Quarter: 2009Q1

REPORT INFORMATION
  Report Type: 
  Country: None (occurrence: None)
  Receive Date: 20090213
  Receipt Date: 20090206
  Transmission Date: 20090719
  Serious: Yes (Other)
  Sender: FDA-Public Use
  Company Number: TPA2008A02112

PATIENT
  Age: 73 Year
  Sex: Male
  Weight: 64.8644 kg

DRUGS (5)
  1. ACTOPLUS MET [Suspect]
     Indication: DIABETES MELLITUS
     Dosage: MG, 15/500 TWICE A DAY, PER ORAL,, MG, 15/850 TWICE A DAY, PER ORAL
     Route: 048
     Dates: start: 20061208, end: 20080406
  2. ACTOPLUS MET [Suspect]
     Indication: DIABETES MELLITUS
     Dosage: MG, 15/500 TWICE A DAY, PER ORAL,, MG, 15/850 TWICE A DAY, PER ORAL
     Route: 048
     Dates: start: 20080407, end: 20081130
  3. LINSINOPRIL (LISINOPRIL) [Concomitant]
  4. DILTIAZEM [Concomitant]
  5. ISOSORBIDE (ISOSORBIDE) [Concomitant]

REACTIONS (4)
  - ACUTE MYOCARDIAL INFARCTION [None]
  - ANAEMIA [None]
  - CARDIAC FAILURE CONGESTIVE [None]
  - VASCULAR OCCLUSION [None]
